FAERS Safety Report 14982775 (Version 1)
Quarter: 2018Q2

REPORT INFORMATION
  Report Type: Spontaneous
  Country: TR (occurrence: TR)
  Receive Date: 20180607
  Receipt Date: 20180607
  Transmission Date: 20180711
  Serious: Yes (Other)
  Sender: FDA-Public Use
  Company Number: TR-TEVA-2018-TR-900498

PATIENT
  Age: 53 Year
  Sex: Female
  Weight: 70 kg

DRUGS (1)
  1. GEMFUL 1000MG/25 ML IV CONCENTRATE FOR SOLUTION FOR INFUSION [Suspect]
     Active Substance: GEMCITABINE HYDROCHLORIDE
     Indication: LUNG NEOPLASM MALIGNANT
     Dosage: 1700 MILLIGRAM DAILY; GEMFUL 1000MG/25 ML IV CONCENTRATE FOR SOLUTION FOR INFUSION
     Route: 042

REACTIONS (3)
  - Vein disorder [Recovered/Resolved]
  - Infusion site pain [Recovered/Resolved]
  - Product quality issue [None]

NARRATIVE: CASE EVENT DATE: 20180524
